FAERS Safety Report 5333502-4 (Version None)
Quarter: 2007Q2

REPORT INFORMATION
  Report Type: 
  Country: None (occurrence: None)
  Receive Date: 20070522
  Receipt Date: 20070522
  Transmission Date: 20071010
  Serious: Yes (Hospitalization)
  Sender: FDA-Public Use
  Company Number: None

PATIENT
  Age: 54 Year
  Sex: Female
  Weight: 63 kg

DRUGS (1)
  1. ZETIA [Suspect]
     Indication: HYPERLIPIDAEMIA
     Dosage: 10MG DAILY PO
     Route: 048
     Dates: start: 20060201, end: 20060801

REACTIONS (4)
  - CARDIAC ENZYMES INCREASED [None]
  - CHEST PAIN [None]
  - MYOSITIS [None]
  - RHABDOMYOLYSIS [None]
